FAERS Safety Report 23260479 (Version 7)
Quarter: 2024Q2

REPORT INFORMATION
  Report Type: Report from Study
  Country: CL (occurrence: CL)
  Receive Date: 20231205
  Receipt Date: 20240508
  Transmission Date: 20240716
  Serious: Yes (Hospitalization, Other)
  Sender: FDA-Public Use
  Company Number: CL-BEH-2023166008

PATIENT
  Age: 41 Year
  Sex: Female

DRUGS (4)
  1. HIZENTRA [Suspect]
     Active Substance: HUMAN IMMUNOGLOBULIN G
     Indication: Immunodeficiency common variable
     Dosage: 8 GRAM
     Route: 058
     Dates: start: 20210616, end: 20231022
  2. HIZENTRA [Suspect]
     Active Substance: HUMAN IMMUNOGLOBULIN G
     Dosage: 8 GRAM
     Route: 058
     Dates: start: 20231206
  3. HIZENTRA [Suspect]
     Active Substance: HUMAN IMMUNOGLOBULIN G
     Dosage: 16 GRAM
     Route: 058
     Dates: start: 20231226
  4. PRIVIGEN [Suspect]
     Active Substance: HUMAN IMMUNOGLOBULIN G
     Route: 065

REACTIONS (8)
  - Meningitis [Unknown]
  - Surgery [Unknown]
  - Meningitis [Unknown]
  - Headache [Recovered/Resolved]
  - Meningitis [Recovered/Resolved]
  - Meningitis chemical [Unknown]
  - Meningitis chemical [Recovered/Resolved]
  - Headache [Recovered/Resolved]

NARRATIVE: CASE EVENT DATE: 20230103
